FAERS Safety Report 24828817 (Version 2)
Quarter: 2025Q2

REPORT INFORMATION
  Report Type: Spontaneous
  Country: US (occurrence: US)
  Receive Date: 20250110
  Receipt Date: 20250405
  Transmission Date: 20250716
  Serious: No
  Sender: SANOFI AVENTIS
  Company Number: US-SANOFI-02365990

PATIENT
  Age: 74 Year
  Sex: Male

DRUGS (2)
  1. LANTUS SOLOSTAR [Suspect]
     Active Substance: INSULIN GLARGINE
     Indication: Type 2 diabetes mellitus
     Dosage: 15 IU, BID
     Route: 065
  2. LANTUS SOLOSTAR [Suspect]
     Active Substance: INSULIN GLARGINE
     Dosage: 10 IU, BID (10 UNITS IN THE MORNING AND 10 UNITS IN THE EVENING)
     Route: 065

REACTIONS (3)
  - Off label use [Unknown]
  - Product storage error [Unknown]
  - Product use issue [Unknown]
